FAERS Safety Report 9482479 (Version 2)
Quarter: 2013Q3

REPORT INFORMATION
  Report Type: Spontaneous
  Country: DE (occurrence: DE)
  Receive Date: 20130828
  Receipt Date: 20130828
  Transmission Date: 20140515
  Serious: Yes (Other)
  Sender: FDA-Public Use
  Company Number: GXKR2013DE002626

PATIENT
  Age: 79 Year
  Sex: Female
  Weight: 70 kg

DRUGS (1)
  1. CIPRO 1A PHARMA [Suspect]
     Indication: PYELONEPHRITIS
     Dosage: 500 MG, BID
     Route: 048
     Dates: start: 20130615, end: 20130624

REACTIONS (2)
  - Posterior capsule opacification [Unknown]
  - Visual impairment [Recovering/Resolving]
